FAERS Safety Report 21300364 (Version 1)
Quarter: 2022Q3

REPORT INFORMATION
  Report Type: Report from Study
  Country: CO (occurrence: CO)
  Receive Date: 20220907
  Receipt Date: 20220907
  Transmission Date: 20221027
  Serious: Yes (Other)
  Sender: FDA-Public Use
  Company Number: CO-BRISTOL-MYERS SQUIBB COMPANY-2022-101415

PATIENT
  Age: 86 Year
  Sex: Male
  Weight: 79 kg

DRUGS (1)
  1. OPDIVO [Suspect]
     Active Substance: NIVOLUMAB
     Indication: Renal cancer
     Dosage: 40 MG/ML EVERY 15 DAYS
     Route: 042
     Dates: start: 20220428

REACTIONS (2)
  - Skin ulcer [Recovering/Resolving]
  - Wrong dosage formulation [Unknown]

NARRATIVE: CASE EVENT DATE: 20220731
